FAERS Safety Report 6663437-6 (Version None)
Quarter: 2010Q2

REPORT INFORMATION
  Report Type: 
  Country: None (occurrence: None)
  Receive Date: 20100401
  Receipt Date: 20100325
  Transmission Date: 20101027
  Serious: Yes (Death, Other)
  Sender: FDA-Public Use
  Company Number: US-BRISTOL-MYERS SQUIBB COMPANY-15036510

PATIENT
  Age: 23 Year
  Sex: Male
  Weight: 61 kg

DRUGS (2)
  1. IXEMPRA KIT [Suspect]
     Indication: EWING'S SARCOMA
     Dosage: 8MG/M2 CYCLE-21DAYS OVER 1 HR ON DAYS1-5
     Route: 042
     Dates: start: 20061016, end: 20061020
  2. COUMADIN [Suspect]

REACTIONS (15)
  - ACTIVATED PARTIAL THROMBOPLASTIN TIME PROLONGED [None]
  - ASTHENIA [None]
  - DECREASED APPETITE [None]
  - DISEASE PROGRESSION [None]
  - EWING'S SARCOMA [None]
  - FATIGUE [None]
  - HAEMORRHAGE INTRACRANIAL [None]
  - INFECTION [None]
  - INTERNATIONAL NORMALISED RATIO INCREASED [None]
  - MALIGNANT NEOPLASM PROGRESSION [None]
  - NEUTROPHIL COUNT DECREASED [None]
  - PROTHROMBIN TIME PROLONGED [None]
  - PULMONARY EMBOLISM [None]
  - SUDDEN DEATH [None]
  - WHITE BLOOD CELL COUNT DECREASED [None]
